FAERS Safety Report 10213949 (Version 1)
Quarter: 2014Q2

REPORT INFORMATION
  Report Type: Spontaneous
  Country: US (occurrence: None)
  Receive Date: 20140602
  Receipt Date: 20140602
  Transmission Date: 20141212
  Serious: No
  Sender: FDA-Public Use
  Company Number: None

PATIENT
  Age: 16 Week
  Sex: Female
  Weight: 66.68 kg

DRUGS (2)
  1. CITALOPRAM 20 MG [Suspect]
     Indication: HYPERHIDROSIS
     Dosage: 1 PILL ONCE DAILY TAKEN BY MOUTH
     Route: 048
     Dates: start: 20140317, end: 20140430
  2. CITALOPRAM 20 MG [Suspect]
     Indication: ANXIETY
     Dosage: 1 PILL ONCE DAILY TAKEN BY MOUTH
     Route: 048
     Dates: start: 20140317, end: 20140430

REACTIONS (2)
  - Eczema [None]
  - Physical product label issue [None]
